FAERS Safety Report 4541961-X (Version None)
Quarter: 2004Q4

REPORT INFORMATION
  Report Type: 
  Country: None (occurrence: None)
  Receive Date: 20041223
  Receipt Date: 20041012
  Transmission Date: 20050328
  Serious: No
  Sender: FDA-Public Use
  Company Number: US-JNJFOC-20041004381

PATIENT
  Age: 22 Year
  Sex: Female
  Weight: 40.8237 kg

DRUGS (2)
  1. ORTHO EVRA [Suspect]
     Indication: ACNE
     Dosage: 1 DOSE(S), 3 IN 4 WEEK, TRANSDERMAL
     Route: 062
     Dates: start: 20040301
  2. PRILOSEC [Concomitant]

REACTIONS (3)
  - APPLICATION SITE REACTION [None]
  - METRORRHAGIA [None]
  - MUSCLE CRAMP [None]
